FAERS Safety Report 15095858 (Version 3)
Quarter: 2018Q3

REPORT INFORMATION
  Report Type: Spontaneous
  Country: US (occurrence: US)
  Receive Date: 20180702
  Receipt Date: 20180806
  Transmission Date: 20181010
  Serious: Yes (Other)
  Sender: FDA-Public Use
  Company Number: US-BAYER-2017-192881

PATIENT
  Age: 42 Year
  Sex: Female
  Weight: 82.54 kg

DRUGS (5)
  1. MIRENA [Suspect]
     Active Substance: LEVONORGESTREL
     Dosage: 20 MCG/24HR, CONT
     Route: 015
     Dates: start: 20150922, end: 20160613
  2. PROGESTERONE. [Concomitant]
     Active Substance: PROGESTERONE
     Indication: VISUAL IMPAIRMENT
     Dosage: UNK
     Dates: start: 20121001, end: 201210
  3. LEVORA [Concomitant]
     Active Substance: ETHINYL ESTRADIOL\LEVONORGESTREL
     Dosage: UNK
     Dates: start: 20150730
  4. NORA BE [Concomitant]
     Active Substance: NORETHINDRONE
     Indication: VISUAL IMPAIRMENT
     Dosage: 035 MG, UNK
     Dates: start: 20121001, end: 20121007
  5. LEVONORGESTREL. [Concomitant]
     Active Substance: LEVONORGESTREL
     Dosage: UNK
     Dates: start: 20150922

REACTIONS (33)
  - Dyspareunia [Unknown]
  - Menorrhagia [Recovered/Resolved]
  - Rash papular [Unknown]
  - Weight decreased [Unknown]
  - Blepharitis [Recovering/Resolving]
  - Menometrorrhagia [Unknown]
  - Crying [Unknown]
  - Adenomyosis [Unknown]
  - Uterine leiomyoma [Unknown]
  - Bladder disorder [Unknown]
  - Eyelids pruritus [Recovering/Resolving]
  - Fatigue [Recovered/Resolved]
  - Hypersensitivity [Unknown]
  - Urinary tract disorder [Unknown]
  - Eyeglasses therapy [Unknown]
  - Back pain [Unknown]
  - Pelvic pain [Recovered/Resolved]
  - Abdominal pain lower [Unknown]
  - Arthralgia [Unknown]
  - Vaginal haemorrhage [Recovered/Resolved]
  - Tooth disorder [Unknown]
  - Vaginal discharge [Unknown]
  - Hormone level abnormal [Unknown]
  - Dysmenorrhoea [Unknown]
  - Skin irritation [Unknown]
  - Abdominal pain upper [Unknown]
  - Pruritus generalised [Unknown]
  - Alopecia [Recovering/Resolving]
  - Female sexual dysfunction [Unknown]
  - Vaginal infection [Unknown]
  - Weight increased [Unknown]
  - Visual impairment [Unknown]
  - Hot flush [Recovered/Resolved]

NARRATIVE: CASE EVENT DATE: 20121105
